FAERS Safety Report 25145023 (Version 1)
Quarter: 2025Q2

REPORT INFORMATION
  Report Type: Report from Study
  Country: IN (occurrence: IN)
  Receive Date: 20250401
  Receipt Date: 20250401
  Transmission Date: 20250716
  Serious: Yes (Other)
  Sender: ROCHE
  Company Number: IN-002147023-NVSC2025IN051066

PATIENT
  Sex: Female

DRUGS (1)
  1. RANIBIZUMAB [Suspect]
     Active Substance: RANIBIZUMAB
     Indication: Retinal vein occlusion
     Route: 050
     Dates: start: 20240217

REACTIONS (3)
  - Optic atrophy [Unknown]
  - Retinal haemorrhage [Recovering/Resolving]
  - Foveal reflex abnormal [Unknown]
